FAERS Safety Report 7677373-X (Version None)
Quarter: 2011Q3

REPORT INFORMATION
  Report Type: 
  Country: None (occurrence: None)
  Receive Date: 20110811
  Receipt Date: 20110811
  Transmission Date: 20111222
  Serious: Yes (Other)
  Sender: FDA-Public Use
  Company Number: NZ-ABBOTT-11P-118-0733699-00

PATIENT
  Sex: Female
  Weight: 49 kg

DRUGS (12)
  1. IBUPROFEN [Concomitant]
     Indication: PRODUCT USED FOR UNKNOWN INDICATION
  2. FERROUS SULFATE TAB [Concomitant]
     Indication: IRON DEFICIENCY
  3. MULTIVITE [Concomitant]
     Indication: PRODUCT USED FOR UNKNOWN INDICATION
  4. HUMIRA [Interacting]
     Dates: start: 20110509
  5. HUMIRA [Suspect]
     Indication: RHEUMATOID ARTHRITIS
     Dosage: FORTHNIGHTLY
     Route: 058
     Dates: start: 20081201, end: 20110330
  6. FOLIC ACID [Concomitant]
     Indication: PRODUCT USED FOR UNKNOWN INDICATION
  7. DOXYCYCLINE [Concomitant]
     Indication: RASH PRURITIC
     Route: 048
  8. DOXYCYCLINE [Concomitant]
     Indication: SKIN DISCOLOURATION
  9. OMEPRAZOLE [Concomitant]
     Indication: PRODUCT USED FOR UNKNOWN INDICATION
  10. METHOTREXATE [Concomitant]
     Indication: RHEUMATOID ARTHRITIS
     Route: 048
  11. AMITRIPTYLINE HCL [Concomitant]
     Indication: PRODUCT USED FOR UNKNOWN INDICATION
  12. ACETAMINOPHEN [Concomitant]
     Indication: PRODUCT USED FOR UNKNOWN INDICATION

REACTIONS (2)
  - LIMB OPERATION [None]
  - OSTEOARTHRITIS [None]
